FAERS Safety Report 7176370-0 (Version None)
Quarter: 2010Q4

REPORT INFORMATION
  Report Type: 
  Country: None (occurrence: None)
  Receive Date: 20101220
  Receipt Date: 20091214
  Transmission Date: 20110411
  Serious: No
  Sender: FDA-Public Use
  Company Number: US-TYCO HEALTHCARE/MALLINCKRODT-T200902330

PATIENT
  Sex: Female

DRUGS (2)
  1. OPTIMARK [Suspect]
     Indication: NUCLEAR MAGNETIC RESONANCE IMAGING
     Dosage: 20 ML, SINGLE
     Dates: start: 20091214, end: 20091214
  2. OPTIMARK [Suspect]
     Dosage: 10 ML, SINGLE
     Dates: start: 20091214, end: 20091214

REACTIONS (2)
  - OFF LABEL USE [None]
  - URTICARIA [None]
